FAERS Safety Report 8283119-7 (Version None)
Quarter: 2012Q2

REPORT INFORMATION
  Report Type: 
  Country: None (occurrence: None)
  Receive Date: 20120413
  Receipt Date: 20120404
  Transmission Date: 20120825
  Serious: Yes (Hospitalization)
  Sender: FDA-Public Use
  Company Number: US-GLAXOSMITHKLINE-A0951392A

PATIENT
  Age: 53 Year
  Sex: Female
  Weight: 67.7 kg

DRUGS (2)
  1. NEBULIZER [Suspect]
     Route: 055
  2. VENTOLIN HFA [Suspect]
     Indication: PRODUCT USED FOR UNKNOWN INDICATION
     Route: 055

REACTIONS (14)
  - HYPOXIA [None]
  - HYPOAESTHESIA [None]
  - CHEST PAIN [None]
  - BUNDLE BRANCH BLOCK RIGHT [None]
  - BACK PAIN [None]
  - MIGRAINE [None]
  - GAIT DISTURBANCE [None]
  - MUSCLE SPASMS [None]
  - MALAISE [None]
  - DYSPNOEA [None]
  - TREMOR [None]
  - FATIGUE [None]
  - HYPERTENSION [None]
  - INFLAMMATION [None]
